FAERS Safety Report 15167190 (Version 2)
Quarter: 2018Q4

REPORT INFORMATION
  Report Type: Spontaneous
  Country: US (occurrence: US)
  Receive Date: 20180719
  Receipt Date: 20180803
  Transmission Date: 20190204
  Serious: No
  Sender: FDA-Public Use
  Company Number: US-COLLEGIUM PHARMACEUTICAL, INC.-2018CGM00240

PATIENT
  Age: 61 Year
  Sex: Female
  Weight: 81.18 kg

DRUGS (8)
  1. VITAMIN D2 [Concomitant]
     Active Substance: ERGOCALCIFEROL
     Dosage: 50000 U, 1X/WEEK
  2. XANAX [Concomitant]
     Active Substance: ALPRAZOLAM
     Dosage: 0.25 MG, 2X/DAY
  3. UNSPECIFIED ENDOCARDITIS MEDICATION [Concomitant]
  4. DULOXETINE. [Concomitant]
     Active Substance: DULOXETINE
     Dosage: 60 MG, 1X/DAY
  5. HYDROCORTISONE. [Concomitant]
     Active Substance: HYDROCORTISONE
     Dosage: 5 UNK, 3X/DAY
  6. SPIRONOLACTONE/HYDROCHLOROTHIAZIDE [Concomitant]
     Dosage: UNK, 1X/DAY
  7. SYNTHROID [Concomitant]
     Active Substance: LEVOTHYROXINE SODIUM
     Dosage: 75 ?G, 1X/DAY
  8. XTAMPZA ER [Suspect]
     Active Substance: OXYCODONE
     Indication: PAIN
     Dosage: ^LESS THAN 1/8TH^ OF A CAPSULE 2 TO 3 TIMES PER DAY
     Route: 050
     Dates: start: 20180329, end: 2018

REACTIONS (3)
  - Blood pressure increased [Recovered/Resolved]
  - Product administration error [Recovered/Resolved]
  - Intentional underdose [Recovered/Resolved]
